FAERS Safety Report 25488201 (Version 1)
Quarter: 2025Q2

REPORT INFORMATION
  Report Type: Spontaneous
  Country: CN (occurrence: CN)
  Receive Date: 20250627
  Receipt Date: 20250627
  Transmission Date: 20250716
  Serious: Yes (Life-Threatening)
  Sender: ROCHE
  Company Number: CN-BoehringerIngelheim-2025-BI-078758

PATIENT
  Age: 67 Year
  Sex: Male
  Weight: 73.0 kg

DRUGS (5)
  1. ALTEPLASE [Suspect]
     Active Substance: ALTEPLASE
     Indication: Cerebral infarction
     Route: 042
     Dates: start: 20250615, end: 20250615
  2. ALTEPLASE [Suspect]
     Active Substance: ALTEPLASE
     Route: 042
     Dates: start: 20250615, end: 20250615
  3. ATORVASTATIN [Concomitant]
     Active Substance: ATORVASTATIN
     Indication: Lipids increased
  4. DEXBORNEOL\EDARAVONE [Concomitant]
     Active Substance: DEXBORNEOL\EDARAVONE
     Indication: Drug therapy
  5. KALLIDINOGENASE [Concomitant]
     Active Substance: KALLIDINOGENASE
     Indication: Drug therapy

REACTIONS (4)
  - Laryngeal oedema [Recovering/Resolving]
  - Rash [Unknown]
  - Dyspnoea [Recovering/Resolving]
  - Allergic oedema [Recovering/Resolving]

NARRATIVE: CASE EVENT DATE: 20250615
